FAERS Safety Report 6165642-4 (Version None)
Quarter: 2009Q2

REPORT INFORMATION
  Report Type: 
  Country: None (occurrence: None)
  Receive Date: 20090423
  Receipt Date: 20090414
  Transmission Date: 20091009
  Serious: Yes (Hospitalization)
  Sender: FDA-Public Use
  Company Number: JP-WATSON-2009-02191

PATIENT
  Sex: Male

DRUGS (5)
  1. RAPAFLO [Suspect]
     Indication: BENIGN PROSTATIC HYPERPLASIA
     Dosage: 4 MG, BID
     Route: 048
     Dates: start: 20081211, end: 20090127
  2. MYSLEE [Suspect]
     Indication: INSOMNIA
     Dosage: 5 MG, DAILY
     Route: 048
     Dates: start: 20081215
  3. BLOPRESS [Concomitant]
     Indication: HYPERTENSION
     Dosage: 4 MG, DAILY
     Route: 048
     Dates: start: 20081224
  4. GASMOTIN [Concomitant]
     Indication: GASTRITIS
     Dosage: 15 MG, DAILY
     Route: 048
     Dates: start: 20080827
  5. MAGMITT [Concomitant]
     Indication: CONSTIPATION
     Dosage: 990 MG, DAILY
     Route: 048
     Dates: start: 20080507

REACTIONS (11)
  - ALANINE AMINOTRANSFERASE INCREASED [None]
  - ASPARTATE AMINOTRANSFERASE INCREASED [None]
  - BILIRUBIN CONJUGATED INCREASED [None]
  - BLOOD ALKALINE PHOSPHATASE INCREASED [None]
  - BLOOD BILIRUBIN INCREASED [None]
  - BLOOD LACTATE DEHYDROGENASE INCREASED [None]
  - GAMMA-GLUTAMYLTRANSFERASE INCREASED [None]
  - HEPATIC FUNCTION ABNORMAL [None]
  - JAUNDICE [None]
  - PLATELET COUNT DECREASED [None]
  - POLYPECTOMY [None]
